FAERS Safety Report 18926407 (Version 3)
Quarter: 2021Q1

REPORT INFORMATION
  Report Type: Spontaneous
  Country: US (occurrence: US)
  Receive Date: 20210223
  Receipt Date: 20210310
  Transmission Date: 20210420
  Serious: Yes (Life-Threatening, Hospitalization, Other)
  Sender: FDA-Public Use
  Company Number: US-AUROBINDO-AUR-APL-2021-007596

PATIENT
  Age: 65 Year
  Sex: Male

DRUGS (7)
  1. MELPHALAN. [Suspect]
     Active Substance: MELPHALAN
     Indication: PLASMA CELL MYELOMA
     Dosage: UNK
     Route: 065
  2. ACETYLSALICYLIC ACID [Concomitant]
     Active Substance: ASPIRIN
     Indication: PRODUCT USED FOR UNKNOWN INDICATION
     Dosage: UNK
     Route: 065
  3. DEXAMETHASONE. [Suspect]
     Active Substance: DEXAMETHASONE
     Indication: PLASMA CELL MYELOMA
     Dosage: UNK, CYCLICAL (5 CYCLE)
     Route: 065
  4. MELPHALAN. [Suspect]
     Active Substance: MELPHALAN
     Indication: BONE MARROW CONDITIONING REGIMEN
  5. LENALIDOMIDE [Suspect]
     Active Substance: LENALIDOMIDE
     Dosage: UNK, CYCLICAL (5 CYCLE)
     Route: 065
  6. BORTEZOMIB. [Suspect]
     Active Substance: BORTEZOMIB
     Indication: PLASMA CELL MYELOMA
     Dosage: UNK, CYCLICAL (5 CYCLE)
     Route: 065
  7. LENALIDOMIDE [Suspect]
     Active Substance: LENALIDOMIDE
     Indication: PLASMA CELL MYELOMA
     Dosage: 15 MILLIGRAM, EVERY OTHER DAY, MAINTENANCE
     Route: 065

REACTIONS (8)
  - Atrial flutter [Recovered/Resolved]
  - Thrombocytopenia [Unknown]
  - Cardiac septal hypertrophy [Recovered/Resolved]
  - Cardiac dysfunction [Recovered/Resolved]
  - Autonomic nervous system imbalance [Recovered/Resolved]
  - Mitral valve incompetence [Recovered/Resolved]
  - Orthostatic hypotension [Recovered/Resolved]
  - Tachycardia [Recovered/Resolved]
